FAERS Safety Report 9875099 (Version 1)
Quarter: 2014Q1

REPORT INFORMATION
  Report Type: Report from Study
  Country: BR (occurrence: BR)
  Receive Date: 20140206
  Receipt Date: 20140206
  Transmission Date: 20141002
  Serious: Yes (Other)
  Sender: FDA-Public Use
  Company Number: PHHY2014BR014077

PATIENT
  Sex: Male

DRUGS (1)
  1. ACLASTA [Suspect]
     Dosage: 5 MG, UNK
     Route: 042

REACTIONS (7)
  - Prostate cancer [Unknown]
  - Skin cancer [Unknown]
  - Lung disorder [Unknown]
  - Pulmonary oedema [Unknown]
  - Feeding disorder [Unknown]
  - Back pain [Unknown]
  - Musculoskeletal pain [Unknown]
